FAERS Safety Report 9798707 (Version 2)
Quarter: 2015Q3

REPORT INFORMATION
  Report Type: Spontaneous
  Country: US (occurrence: US)
  Receive Date: 20140106
  Receipt Date: 20150806
  Transmission Date: 20151125
  Serious: No
  Sender: FDA-Public Use
  Company Number: US-GILEAD-2010-0029899

PATIENT
  Age: 76 Year
  Sex: Female
  Weight: 45.36 kg

DRUGS (15)
  1. LETAIRIS [Suspect]
     Active Substance: AMBRISENTAN
     Indication: PULMONARY ARTERIAL HYPERTENSION
     Route: 048
     Dates: start: 20100401
  2. TUMS [Concomitant]
     Active Substance: CALCIUM CARBONATE
  3. DILT-CD [Concomitant]
     Active Substance: DILTIAZEM HYDROCHLORIDE
  4. LASIX [Concomitant]
     Active Substance: FUROSEMIDE
  5. TYLENOL EX [Concomitant]
  6. COREG [Concomitant]
     Active Substance: CARVEDILOL
  7. ALTACE [Concomitant]
     Active Substance: RAMIPRIL
  8. POTASSIUM [Concomitant]
     Active Substance: POTASSIUM
  9. CENTRUM MULTIVITAMIN [Concomitant]
  10. CALCIUM [Concomitant]
     Active Substance: CALCIUM
  11. XANAX [Concomitant]
     Active Substance: ALPRAZOLAM
  12. IBU [Concomitant]
     Active Substance: IBUPROFEN
  13. CALCITONIN-SALMON [Concomitant]
     Active Substance: CALCITONIN SALMON
  14. ASPIRIN. [Concomitant]
     Active Substance: ASPIRIN
  15. VITAMIN D [Concomitant]
     Active Substance: CHOLECALCIFEROL

REACTIONS (1)
  - Rhinorrhoea [Unknown]
